FAERS Safety Report 7157303-X (Version None)
Quarter: 2010Q4

REPORT INFORMATION
  Report Type: 
  Country: None (occurrence: None)
  Receive Date: 20101214
  Receipt Date: 20101115
  Transmission Date: 20110411
  Serious: No
  Sender: FDA-Public Use
  Company Number: US-PFIZER INC-2010169487

PATIENT
  Age: 66 Year

DRUGS (1)
  1. AMIODARONE HCL [Suspect]

REACTIONS (1)
  - URINARY HESITATION [None]
